FAERS Safety Report 19444558 (Version 1)
Quarter: 2021Q2

REPORT INFORMATION
  Report Type: Spontaneous
  Country: US (occurrence: US)
  Receive Date: 20210621
  Receipt Date: 20210621
  Transmission Date: 20210717
  Serious: Yes (Other)
  Sender: FDA-Public Use
  Company Number: US-SA-2021SA181264

PATIENT
  Age: 33 Year
  Sex: Female

DRUGS (4)
  1. LIDOCAINE. [Suspect]
     Active Substance: LIDOCAINE
     Indication: PHLEBECTOMY
     Dosage: 20 ML
  2. LIDOCAINE. [Suspect]
     Active Substance: LIDOCAINE
     Indication: LOCAL ANAESTHESIA
  3. EPINEPHRINE. [Suspect]
     Active Substance: EPINEPHRINE
     Indication: LOCAL ANAESTHESIA
     Dosage: 1 / 100,000
     Route: 065
  4. EPINEPHRINE. [Suspect]
     Active Substance: EPINEPHRINE
     Indication: PHLEBECTOMY

REACTIONS (3)
  - Skin necrosis [Unknown]
  - Post procedural complication [Unknown]
  - Scar [Unknown]
